FAERS Safety Report 9915945 (Version 1)
Quarter: 2014Q1

REPORT INFORMATION
  Report Type: Spontaneous
  Country: US (occurrence: None)
  Receive Date: 20140219
  Receipt Date: 20140219
  Transmission Date: 20141002
  Serious: Yes (Other)
  Sender: FDA-Public Use
  Company Number: 201402000096

PATIENT
  Age: 0 Day
  Sex: 0

DRUGS (1)
  1. INOMAX [Suspect]
     Indication: PULMONARY HYPERTENSION
     Dosage: UNK PPM, CONTINUOUS, INHALATION
     Route: 055
     Dates: start: 2011, end: 2011

REACTIONS (2)
  - Pulmonary haemorrhage [None]
  - Off label use [None]
